FAERS Safety Report 25141365 (Version 1)
Quarter: 2025Q1

REPORT INFORMATION
  Report Type: Spontaneous
  Country: US (occurrence: US)
  Receive Date: 20250331
  Receipt Date: 20250331
  Transmission Date: 20250409
  Serious: Yes (Other)
  Sender: FERRING
  Company Number: US-FERRINGPH-2025FE01459

PATIENT

DRUGS (1)
  1. ADSTILADRIN [Suspect]
     Active Substance: NADOFARAGENE FIRADENOVEC-VNCG
     Indication: Product used for unknown indication
     Route: 065
     Dates: start: 202412

REACTIONS (2)
  - Bladder cancer recurrent [Not Recovered/Not Resolved]
  - Drug ineffective [Unknown]
